FAERS Safety Report 7029752-1 (Version None)
Quarter: 2010Q4

REPORT INFORMATION
  Report Type: 
  Country: None (occurrence: None)
  Receive Date: 20101005
  Receipt Date: 20101005
  Transmission Date: 20110411
  Serious: Yes (Other)
  Sender: FDA-Public Use
  Company Number: None

PATIENT
  Age: 59 Year
  Sex: Female
  Weight: 72.5755 kg

DRUGS (7)
  1. ALPHAGAN P [Suspect]
     Indication: GLAUCOMA
     Dosage: 1 DROP 3/DAY INTRAOCULAR
     Route: 014
     Dates: start: 20100726, end: 20101004
  2. AZOPT [Suspect]
     Indication: GLAUCOMA
     Dosage: 1 DROP 3/DAY ALCON INTRAOCULAR
     Route: 014
     Dates: start: 20100823, end: 20101004
  3. ACULAR [Concomitant]
  4. LOTEMAX EYE DROPS [Concomitant]
  5. C-THYROID USP CAPSULES [Concomitant]
  6. THYROID TAB [Concomitant]
  7. CYANOCOBALAMIN [Concomitant]

REACTIONS (9)
  - ASTHENIA [None]
  - BURNING SENSATION [None]
  - DEPRESSION [None]
  - FATIGUE [None]
  - HYPOAESTHESIA [None]
  - INFLAMMATION [None]
  - MUSCULOSKELETAL STIFFNESS [None]
  - MYALGIA [None]
  - PAIN IN EXTREMITY [None]
